FAERS Safety Report 9424419 (Version 1)
Quarter: 2013Q3

REPORT INFORMATION
  Report Type: Spontaneous
  Country: US (occurrence: None)
  Receive Date: 20130726
  Receipt Date: 20130726
  Transmission Date: 20140515
  Serious: Yes (Hospitalization)
  Sender: FDA-Public Use
  Company Number: None

PATIENT
  Age: 80 Year
  Sex: Female

DRUGS (7)
  1. IPILIMUMAB [Suspect]
     Indication: MALIGNANT MELANOMA
     Dosage: Q3WEEKS
     Route: 040
  2. ATENOLOL [Concomitant]
  3. LISINOPRIL [Concomitant]
  4. CENTRUM SILVER [Concomitant]
  5. PRILOSEC [Concomitant]
  6. PREDNISONE [Concomitant]
  7. TEMAZEPAM [Concomitant]

REACTIONS (1)
  - Enterocolitis haemorrhagic [None]
